FAERS Safety Report 11348423 (Version 2)
Quarter: 2015Q3

REPORT INFORMATION
  Report Type: Spontaneous
  Country: DE (occurrence: DE)
  Receive Date: 20150806
  Receipt Date: 20150825
  Transmission Date: 20151125
  Serious: Yes (Disabling)
  Sender: FDA-Public Use
  Company Number: GXKR2015DE003665

PATIENT
  Sex: Female

DRUGS (6)
  1. VENLAFAXIN HEXAL 75 MG RETARDTABLETTEN [Suspect]
     Active Substance: VENLAFAXINE HYDROCHLORIDE
     Indication: DEPRESSION
     Dosage: 300 MG, UNK
     Route: 065
     Dates: start: 2009
  2. VENLAFAXIN HEXAL 75 MG RETARDTABLETTEN [Suspect]
     Active Substance: VENLAFAXINE HYDROCHLORIDE
     Dosage: 37.5 MG, UNK
     Route: 048
  3. VENLAFAXIN HEXAL 75 MG RETARDTABLETTEN [Suspect]
     Active Substance: VENLAFAXINE HYDROCHLORIDE
     Dosage: 225 MG, UNK
     Route: 048
  4. VENLAFAXIN HEXAL 75 MG RETARDTABLETTEN [Suspect]
     Active Substance: VENLAFAXINE HYDROCHLORIDE
     Dosage: 300 MG, UNK
     Route: 048
     Dates: start: 201412
  5. VENLAFAXIN HEXAL 75 MG RETARDTABLETTEN [Suspect]
     Active Substance: VENLAFAXINE HYDROCHLORIDE
     Dosage: 150 MG, UNK
     Route: 048
     Dates: start: 201507
  6. VENLAFAXIN HEXAL 75 MG RETARDTABLETTEN [Suspect]
     Active Substance: VENLAFAXINE HYDROCHLORIDE
     Dosage: 150 MG, UNK
     Route: 048

REACTIONS (6)
  - Agoraphobia [Not Recovered/Not Resolved]
  - Nausea [Not Recovered/Not Resolved]
  - Gait disturbance [Not Recovered/Not Resolved]
  - Urticaria [Recovering/Resolving]
  - Formication [Recovering/Resolving]
  - Balance disorder [Not Recovered/Not Resolved]
